FAERS Safety Report 7540924-X (Version None)
Quarter: 2011Q2

REPORT INFORMATION
  Report Type: 
  Country: None (occurrence: None)
  Receive Date: 20110610
  Receipt Date: 20110528
  Transmission Date: 20111010
  Serious: Yes (Other)
  Sender: FDA-Public Use
  Company Number: AU-JNJFOC-20110503027

PATIENT
  Sex: Male

DRUGS (5)
  1. STELARA [Suspect]
     Route: 058
     Dates: start: 20101025
  2. STELARA [Suspect]
     Route: 058
     Dates: start: 20110517
  3. STELARA [Suspect]
     Indication: PSORIASIS
     Route: 058
     Dates: start: 20101122
  4. STELARA [Suspect]
     Route: 058
     Dates: start: 20110212
  5. ZOLOFT [Concomitant]
     Dates: start: 20090401

REACTIONS (5)
  - DIARRHOEA [None]
  - POOR QUALITY SLEEP [None]
  - LOWER RESPIRATORY TRACT INFECTION [None]
  - HEPATIC INFECTION [None]
  - FATIGUE [None]
